FAERS Safety Report 23753927 (Version 2)
Quarter: 2024Q2

REPORT INFORMATION
  Report Type: Spontaneous
  Country: US (occurrence: US)
  Receive Date: 20240417
  Receipt Date: 20240528
  Transmission Date: 20240715
  Serious: No
  Sender: FDA-Public Use
  Company Number: US-Dermavant-001088

PATIENT
  Sex: Female

DRUGS (4)
  1. TAPINAROF [Suspect]
     Active Substance: TAPINAROF
     Indication: Psoriasis
     Route: 061
     Dates: start: 20231201, end: 20240202
  2. TACROLIMUS [Concomitant]
     Active Substance: TACROLIMUS
  3. CLOBETASOL [Concomitant]
     Active Substance: CLOBETASOL
  4. CALCIPOTRIENE [Concomitant]
     Active Substance: CALCIPOTRIENE

REACTIONS (3)
  - Squamous cell carcinoma [Unknown]
  - Rash [Unknown]
  - Folliculitis [Unknown]
